FAERS Safety Report 8535545-6 (Version None)
Quarter: 2012Q3

REPORT INFORMATION
  Report Type: 
  Country: None (occurrence: None)
  Receive Date: 20120717
  Receipt Date: 20120717
  Transmission Date: 20120928
  Serious: Yes (Hospitalization)
  Sender: FDA-Public Use
  Company Number: None

PATIENT
  Sex: Male
  Weight: 85.5 kg

DRUGS (1)
  1. CISPLATIN [Suspect]
     Dosage: 400 MG

REACTIONS (4)
  - NAUSEA [None]
  - DEHYDRATION [None]
  - VOMITING [None]
  - HYPOPHAGIA [None]
